FAERS Safety Report 5149963-X (Version None)
Quarter: 2006Q4

REPORT INFORMATION
  Report Type: 
  Country: None (occurrence: None)
  Receive Date: 20061108
  Receipt Date: 20061027
  Transmission Date: 20070319
  Serious: Yes (Other)
  Sender: FDA-Public Use
  Company Number: 2006131526

PATIENT
  Age: 73 Year
  Sex: Female
  Weight: 88.4514 kg

DRUGS (5)
  1. LIPITOR [Suspect]
     Indication: BLOOD CHOLESTEROL INCREASED
     Dosage: 20 MG (20 MG, 1 IN 1 D)
     Dates: start: 20060901
  2. DIURETICS         (DIURETICS) [Concomitant]
  3. CELECOXIB               (CELECOXIB) [Concomitant]
  4. RAMIPRIL [Concomitant]
  5. ALENDRONATE SODIUM [Concomitant]

REACTIONS (12)
  - AGEUSIA [None]
  - AMNESIA [None]
  - ANXIETY [None]
  - ARTHRALGIA [None]
  - CONSTIPATION [None]
  - DEPRESSION [None]
  - DIZZINESS [None]
  - FATIGUE [None]
  - FLATULENCE [None]
  - INSOMNIA [None]
  - MYALGIA [None]
  - VERTIGO [None]
